FAERS Safety Report 8608339-0 (Version None)
Quarter: 2012Q3

REPORT INFORMATION
  Report Type: 
  Country: None (occurrence: None)
  Receive Date: 20120821
  Receipt Date: 20120816
  Transmission Date: 20120928
  Serious: Yes (Life-Threatening, Hospitalization, Other)
  Sender: FDA-Public Use
  Company Number: US-ASTRAZENECA-2012SE22049

PATIENT
  Age: 58 Year
  Sex: Female

DRUGS (1)
  1. NEXIUM [Suspect]
     Route: 048

REACTIONS (19)
  - PHARYNGEAL HAEMORRHAGE [None]
  - SPLEEN DISORDER [None]
  - PLATELET COUNT DECREASED [None]
  - AUTOIMMUNE DISORDER [None]
  - NASOPHARYNGITIS [None]
  - GASTROOESOPHAGEAL REFLUX DISEASE [None]
  - EAR PAIN [None]
  - APHAGIA [None]
  - SPEECH DISORDER [None]
  - PROCEDURAL COMPLICATION [None]
  - UPPER GASTROINTESTINAL HAEMORRHAGE [None]
  - APPARENT DEATH [None]
  - HAEMATEMESIS [None]
  - RENAL FAILURE [None]
  - ULCER [None]
  - PNEUMONIA [None]
  - ASTHENIA [None]
  - DRUG DOSE OMISSION [None]
  - PHARYNGEAL EROSION [None]
